FAERS Safety Report 9425806 (Version 1)
Quarter: 2013Q3

REPORT INFORMATION
  Report Type: Spontaneous
  Country: GB (occurrence: GB)
  Receive Date: 20130729
  Receipt Date: 20130729
  Transmission Date: 20140515
  Serious: Yes (Other)
  Sender: FDA-Public Use
  Company Number: GB-WATSON-2013-13298

PATIENT
  Sex: Male

DRUGS (3)
  1. ALLOPURINOL (UNKNOWN) [Suspect]
     Indication: GOUT
     Dosage: 300 MG, DAILY
     Route: 065
  2. ALLOPURINOL (UNKNOWN) [Suspect]
     Indication: LIMB DISCOMFORT
     Dosage: 100 MG, DAILY
     Route: 065
  3. AMLODIPINE /00972402/ [Suspect]
     Indication: PRODUCT USED FOR UNKNOWN INDICATION
     Dosage: 5 MG, DAILY
     Route: 065

REACTIONS (2)
  - Pain in extremity [Recovering/Resolving]
  - Gouty tophus [Recovering/Resolving]
